FAERS Safety Report 10146105 (Version 1)
Quarter: 2014Q2

REPORT INFORMATION
  Report Type: Spontaneous
  Country: US (occurrence: None)
  Receive Date: 20140430
  Receipt Date: 20140430
  Transmission Date: 20141212
  Serious: Yes (Death)
  Sender: FDA-Public Use
  Company Number: None

PATIENT
  Age: 81 Year
  Sex: Male

DRUGS (13)
  1. TOPIRAMATE [Suspect]
     Indication: CONVULSION
     Dosage: 100 MG, EVERY 12 HOURS, TUBE
     Route: 050
     Dates: start: 20131008, end: 20131022
  2. TOPIRAMATE [Suspect]
     Indication: PROPHYLAXIS
     Dosage: 100 MG, EVERY 12 HOURS, TUBE
     Route: 050
     Dates: start: 20131008, end: 20131022
  3. BISACODYL [Concomitant]
  4. CEFEPIME [Concomitant]
  5. DOCUSATE [Concomitant]
  6. FAMOTIDINE [Concomitant]
  7. IBUPROFEN [Concomitant]
  8. INSULIN [Concomitant]
  9. LABETALOL [Concomitant]
  10. LACOSAMIDE [Concomitant]
  11. MIDAZOLAM [Concomitant]
  12. LEVETIRACETAM [Concomitant]
  13. PHENOBARBITAL [Concomitant]

REACTIONS (1)
  - Hypersensitivity [None]
